FAERS Safety Report 10286157 (Version 1)
Quarter: 2014Q3

REPORT INFORMATION
  Report Type: Report from Study
  Country: US (occurrence: US)
  Receive Date: 20140709
  Receipt Date: 20140709
  Transmission Date: 20150326
  Serious: Yes (Hospitalization, Other)
  Sender: FDA-Public Use
  Company Number: US-ASTELLAS-2014US007999

PATIENT
  Age: 87 Year
  Sex: Female

DRUGS (2)
  1. ERLOTINIB [Suspect]
     Active Substance: ERLOTINIB
     Indication: LUNG NEOPLASM
  2. ERLOTINIB [Suspect]
     Active Substance: ERLOTINIB
     Indication: NON-SMALL CELL LUNG CANCER
     Route: 065
     Dates: start: 20131124, end: 20140630

REACTIONS (21)
  - Diarrhoea [Unknown]
  - Sepsis [Unknown]
  - Rash [Recovered/Resolved]
  - Transfusion [Unknown]
  - Dehydration [Unknown]
  - Infection [Unknown]
  - Asthenia [Recovered/Resolved]
  - Drug ineffective [Unknown]
  - Septic shock [Unknown]
  - Haemoglobin decreased [Unknown]
  - Anaemia [Unknown]
  - Dizziness [Unknown]
  - Staphylococcal infection [Unknown]
  - Decreased appetite [Recovered/Resolved]
  - Fatigue [Recovered/Resolved]
  - Pallor [Unknown]
  - Neoplasm [Unknown]
  - Pyrexia [Unknown]
  - Blood pressure decreased [Unknown]
  - Syncope [Unknown]
  - Macule [Recovered/Resolved]

NARRATIVE: CASE EVENT DATE: 201401
